FAERS Safety Report 13731649 (Version 1)
Quarter: 2017Q3

REPORT INFORMATION
  Report Type: Spontaneous
  Country: HU (occurrence: HU)
  Receive Date: 20170707
  Receipt Date: 20170707
  Transmission Date: 20171127
  Serious: Yes (Hospitalization)
  Sender: FDA-Public Use
  Company Number: HU-ELI_LILLY_AND_COMPANY-HU201706012163

PATIENT
  Age: 64 Year
  Sex: Male

DRUGS (1)
  1. ZYPADHERA [Suspect]
     Active Substance: OLANZAPINE PAMOATE
     Indication: SCHIZOPHRENIA
     Dosage: 300 MG, 2/M
     Route: 030
     Dates: start: 2014

REACTIONS (5)
  - Heart rate increased [Recovered/Resolved]
  - Disorientation [Recovered/Resolved]
  - Malaise [Recovered/Resolved]
  - Stereotypy [Recovered/Resolved]
  - Hypertension [Recovered/Resolved]
